FAERS Safety Report 8296615-3 (Version None)
Quarter: 2012Q2

REPORT INFORMATION
  Report Type: 
  Country: None (occurrence: None)
  Receive Date: 20120418
  Receipt Date: 20120418
  Transmission Date: 20120825
  Serious: Yes (Hospitalization)
  Sender: FDA-Public Use
  Company Number: None

PATIENT
  Age: 77 Year
  Sex: Female
  Weight: 77.11 kg

DRUGS (1)
  1. ENABLEX [Suspect]
     Indication: HYPERTONIC BLADDER
     Route: 048
     Dates: start: 20111219, end: 20120402

REACTIONS (3)
  - CHEST PAIN [None]
  - MIGRAINE [None]
  - MIDDLE INSOMNIA [None]
